FAERS Safety Report 7183124-8 (Version None)
Quarter: 2010Q4

REPORT INFORMATION
  Report Type: 
  Country: None (occurrence: None)
  Receive Date: 20101222
  Receipt Date: 20101213
  Transmission Date: 20110411
  Serious: Yes (Other)
  Sender: FDA-Public Use
  Company Number: US-RB-017031-10

PATIENT
  Age: 60 Year
  Sex: Female

DRUGS (1)
  1. MUCINEX DM [Suspect]
     Dosage: 1 TABLET TOTAL
     Route: 048

REACTIONS (4)
  - DISORIENTATION [None]
  - DYSPNOEA [None]
  - FLUSHING [None]
  - HYPERTENSION [None]
